FAERS Safety Report 5608312-0 (Version None)
Quarter: 2008Q1

REPORT INFORMATION
  Report Type: 
  Country: None (occurrence: None)
  Receive Date: 20080130
  Receipt Date: 20080123
  Transmission Date: 20080703
  Serious: Yes (Hospitalization)
  Sender: FDA-Public Use
  Company Number: US-BOEHRINGER INGELHEIM GMBH, GERMANY-2007-BP-15883BP

PATIENT
  Age: 73 Year
  Sex: Female

DRUGS (12)
  1. MOBIC [Suspect]
     Indication: OSTEOARTHRITIS
     Route: 048
     Dates: start: 20070503
  2. MOBIC [Suspect]
     Route: 048
     Dates: start: 20070426, end: 20070503
  3. ALLEGRA [Concomitant]
  4. FLONASE [Concomitant]
  5. LISINOPRIL [Concomitant]
  6. CHLORTHALIDONE [Concomitant]
  7. EVISTA [Concomitant]
  8. ACTOS [Concomitant]
  9. LYRICA [Concomitant]
  10. ZANAFLEX [Concomitant]
  11. LIDODERM [Concomitant]
     Route: 061
  12. HYDROCODONE BITARTRATE [Concomitant]

REACTIONS (13)
  - ABDOMINAL PAIN [None]
  - ARTHRALGIA [None]
  - BLOOD POTASSIUM DECREASED [None]
  - CARDIOMEGALY [None]
  - DIARRHOEA [None]
  - DIVERTICULUM INTESTINAL [None]
  - HAEMATOCHEZIA [None]
  - HAEMORRHOIDS [None]
  - HEADACHE [None]
  - LUNG INFILTRATION [None]
  - PLEURAL EFFUSION [None]
  - RECTAL HAEMORRHAGE [None]
  - WEIGHT DECREASED [None]
